FAERS Safety Report 24156432 (Version 1)
Quarter: 2024Q3

REPORT INFORMATION
  Report Type: Spontaneous
  Country: US (occurrence: None)
  Receive Date: 20240730
  Receipt Date: 20240730
  Transmission Date: 20241016
  Serious: No
  Sender: Public
  Company Number: None

PATIENT
  Age: 33 Year
  Sex: Female
  Weight: 49.95 kg

DRUGS (2)
  1. METHOTREXATE [Suspect]
     Active Substance: METHOTREXATE
     Indication: Ectopic pregnancy
     Dosage: OTHER FREQUENCY : ONCE;?
     Route: 030
     Dates: start: 20240730, end: 20240730
  2. METHOTREXATE [Concomitant]
     Active Substance: METHOTREXATE
     Dates: start: 20240730, end: 20240730

REACTIONS (2)
  - Dizziness [None]
  - Pallor [None]

NARRATIVE: CASE EVENT DATE: 20240730
